FAERS Safety Report 24738372 (Version 1)
Quarter: 2024Q4

REPORT INFORMATION
  Report Type: Spontaneous
  Country: US (occurrence: US)
  Receive Date: 20241216
  Receipt Date: 20241216
  Transmission Date: 20250114
  Serious: Yes (Other)
  Sender: PFIZER
  Company Number: US-PFIZER INC-202400321716

PATIENT
  Age: 65 Year
  Sex: Female

DRUGS (2)
  1. XELJANZ XR [Suspect]
     Active Substance: TOFACITINIB CITRATE
     Indication: Psoriatic arthropathy
     Dosage: 11 MG, DAILY, TAKE 1 TABLET DAILY
  2. AZATHIOPRINE [Concomitant]
     Active Substance: AZATHIOPRINE
     Dosage: 50 MG, 2X/DAY (TAKE 1 TABS TWICE A DAY)

REACTIONS (9)
  - Hypothyroidism [Unknown]
  - Psoriasis [Not Recovered/Not Resolved]
  - Antinuclear antibody positive [Unknown]
  - Gastroenteritis [Unknown]
  - Tooth disorder [Unknown]
  - Impaired healing [Unknown]
  - Fatigue [Not Recovered/Not Resolved]
  - Hyperlipidaemia [Unknown]
  - Gastrooesophageal reflux disease [Unknown]
